FAERS Safety Report 14612743 (Version 1)
Quarter: 2018Q1

REPORT INFORMATION
  Report Type: Report from Study
  Country: US (occurrence: US)
  Receive Date: 20180308
  Receipt Date: 20180308
  Transmission Date: 20180509
  Serious: Yes (Hospitalization)
  Sender: FDA-Public Use
  Company Number: US-JNJFOC-20180301886

PATIENT
  Age: 71 Year
  Sex: Male
  Weight: 100 kg

DRUGS (8)
  1. AZACITIDINE. [Suspect]
     Active Substance: AZACITIDINE
     Indication: MYELODYSPLASTIC SYNDROME
     Dosage: 163 MG, D1-5, 8-9 OF CYCLE
     Route: 042
     Dates: start: 20180205, end: 20180213
  2. ZOFRAN [Concomitant]
     Active Substance: ONDANSETRON HYDROCHLORIDE
  3. ATIVAN [Concomitant]
     Active Substance: LORAZEPAM
  4. LOSARTAN. [Concomitant]
     Active Substance: LOSARTAN
  5. AZACITIDINE. [Suspect]
     Active Substance: AZACITIDINE
     Indication: MYELODYSPLASTIC SYNDROME
     Dosage: 75 MG/M2, D1-5, 8-9 OF CYCLE
     Route: 042
     Dates: start: 20171113, end: 20180116
  6. ATORVASTATIN [Concomitant]
     Active Substance: ATORVASTATIN
  7. AMLODIPINE [Concomitant]
     Active Substance: AMLODIPINE BESYLATE
  8. IBRUTINIB [Suspect]
     Active Substance: IBRUTINIB
     Indication: MYELODYSPLASTIC SYNDROME
     Route: 048
     Dates: start: 20171113

REACTIONS (1)
  - Subdural haematoma [Unknown]

NARRATIVE: CASE EVENT DATE: 20180221
